FAERS Safety Report 12265550 (Version 1)
Quarter: 2016Q2

REPORT INFORMATION
  Report Type: Spontaneous
  Country: US (occurrence: US)
  Receive Date: 20160413
  Receipt Date: 20160413
  Transmission Date: 20160815
  Serious: Yes (Hospitalization)
  Sender: FDA-Public Use
  Company Number: US-TEVA-650303USA

PATIENT
  Age: 57 Year
  Sex: Female

DRUGS (1)
  1. COPAXONE [Suspect]
     Active Substance: GLATIRAMER ACETATE
     Indication: MULTIPLE SCLEROSIS
     Dates: start: 20160314

REACTIONS (8)
  - Hospitalisation [Unknown]
  - Chills [Unknown]
  - Asthenia [Unknown]
  - Hepatic enzyme increased [Unknown]
  - Incontinence [Unknown]
  - Headache [Unknown]
  - Pyrexia [Unknown]
  - Trismus [Unknown]

NARRATIVE: CASE EVENT DATE: 201603
